FAERS Safety Report 8360911-1 (Version None)
Quarter: 2012Q2

REPORT INFORMATION
  Report Type: 
  Country: None (occurrence: None)
  Receive Date: 20120515
  Receipt Date: 20120501
  Transmission Date: 20120825
  Serious: Yes (Hospitalization, Other)
  Sender: FDA-Public Use
  Company Number: US-CELGENEUS-163-21880-11082114

PATIENT
  Sex: Male

DRUGS (22)
  1. ADVAIR DISKUS 100/50 [Concomitant]
     Dosage: 100-50MCG, 2 PUFFS
     Route: 055
  2. GLIPIZIDE [Concomitant]
     Dosage: 2 TABLET
     Route: 048
  3. CLOTRIMAZOLE [Concomitant]
     Dosage: 1 APPLICATION
     Route: 061
  4. DEXAMETHASONE [Concomitant]
     Indication: MULTIPLE MYELOMA
     Route: 065
     Dates: end: 20091201
  5. TORSEMIDE [Concomitant]
     Dosage: 1/2 TABLET
     Route: 048
  6. REVLIMID [Suspect]
     Dosage: 5 MILLIGRAM
     Route: 048
     Dates: start: 20080718, end: 20091201
  7. REVLIMID [Suspect]
     Dosage: 5 MILLIGRAM
     Route: 048
     Dates: start: 20110421, end: 20110818
  8. DEXAMETHASONE [Concomitant]
     Dosage: 20 MILLIGRAM
     Route: 048
     Dates: start: 20110101
  9. DULCOLAX [Concomitant]
     Dosage: 5 MILLIGRAM
     Route: 048
  10. NEXIUM [Concomitant]
     Dosage: 40 MILLIGRAM
     Route: 048
  11. REVLIMID [Suspect]
     Dosage: 5 MILLIGRAM
     Route: 048
     Dates: start: 20100501
  12. LANTUS [Concomitant]
     Dosage: 28U
     Route: 058
  13. ASPIRIN [Concomitant]
     Dosage: 81 MILLIGRAM
     Route: 048
  14. CARISOPRODOL [Concomitant]
     Dosage: 1/2 - 1 TABLET
     Route: 048
  15. CITALOPRAM HYDROBROMIDE [Concomitant]
     Dosage: 3 TABLET
     Route: 048
  16. TYLENOL (CAPLET) [Concomitant]
     Route: 065
  17. SENNA-MINT WAF [Concomitant]
     Dosage: 8.6 MILLIGRAM
     Route: 048
  18. UREACIN [Concomitant]
     Dosage: 1 APPLICATION
     Route: 061
  19. HUMALOG [Concomitant]
     Dosage: 100U, SLIDING SCALE
     Route: 058
  20. DARBEPOETIN ALFA [Concomitant]
     Route: 065
  21. LACTULOSE [Concomitant]
     Dosage: 10G/15ML, 15ML
     Route: 048
  22. TAMSULOSIN HCL [Concomitant]
     Dosage: .4 MILLIGRAM
     Route: 048

REACTIONS (6)
  - BASAL CELL CARCINOMA [None]
  - NIGHT SWEATS [None]
  - HAEMATOCRIT DECREASED [None]
  - PYREXIA [None]
  - LETHARGY [None]
  - ASTHENIA [None]
